FAERS Safety Report 5221177-4 (Version None)
Quarter: 2007Q1

REPORT INFORMATION
  Report Type: 
  Country: None (occurrence: None)
  Receive Date: 20061201
  Receipt Date: 20060912
  Transmission Date: 20070707
  Serious: No
  Sender: FDA-Public Use
  Company Number: 2006PV015446

PATIENT
  Age: 61 Year
  Sex: Female
  Weight: 116.1208 kg

DRUGS (6)
  1. BYETTA [Suspect]
     Indication: DIABETES MELLITUS NON-INSULIN-DEPENDENT
     Dosage: SEE IMAGE
     Route: 058
     Dates: start: 20060425, end: 20060601
  2. BYETTA [Suspect]
     Indication: DIABETES MELLITUS NON-INSULIN-DEPENDENT
     Dosage: SEE IMAGE
     Route: 058
     Dates: start: 20060601
  3. BYETTA [Suspect]
  4. GLUCOPHAGE [Concomitant]
  5. TAGAMET [Concomitant]
  6. ASPIRIN [Concomitant]

REACTIONS (9)
  - ABDOMINAL PAIN UPPER [None]
  - ASTHENIA [None]
  - CHOLELITHIASIS [None]
  - DIARRHOEA [None]
  - DYSPEPSIA [None]
  - ENERGY INCREASED [None]
  - INJECTION SITE BRUISING [None]
  - NAUSEA [None]
  - WEIGHT DECREASED [None]
